FAERS Safety Report 8621828-8 (Version None)
Quarter: 2012Q3

REPORT INFORMATION
  Report Type: 
  Country: None (occurrence: None)
  Receive Date: 20120821
  Receipt Date: 20120821
  Transmission Date: 20120928
  Serious: Yes (Hospitalization, Disabling)
  Sender: FDA-Public Use
  Company Number: None

PATIENT
  Age: 23 Year
  Sex: Female
  Weight: 83.4619 kg

DRUGS (1)
  1. CIPROFLOXACIN [Suspect]
     Indication: URINARY TRACT INFECTION
     Dosage: 500MG 10 DAYS PO
     Route: 048
     Dates: start: 20110920, end: 20110930

REACTIONS (10)
  - ANXIETY [None]
  - NEUROPATHY PERIPHERAL [None]
  - PANIC ATTACK [None]
  - INSOMNIA [None]
  - POLLAKIURIA [None]
  - HAEMATOCHEZIA [None]
  - ARTHRALGIA [None]
  - TENDON PAIN [None]
  - ELECTRIC SHOCK [None]
  - HEPATIC CYST [None]
